FAERS Safety Report 8520539-7 (Version None)
Quarter: 2012Q3

REPORT INFORMATION
  Report Type: 
  Country: None (occurrence: None)
  Receive Date: 20120719
  Receipt Date: 20120703
  Transmission Date: 20120928
  Serious: No
  Sender: FDA-Public Use
  Company Number: US-BAYER-2012-066838

PATIENT
  Age: 45 Year
  Sex: Female

DRUGS (2)
  1. MAGNEVIST [Suspect]
     Indication: NUCLEAR MAGNETIC RESONANCE IMAGING BRAIN
     Dosage: 13 ML, ONCE
     Route: 042
     Dates: start: 20120703, end: 20120703
  2. MAGNEVIST [Suspect]
     Indication: MIGRAINE

REACTIONS (3)
  - URTICARIA [None]
  - DYSPNOEA [None]
  - NAUSEA [None]
